FAERS Safety Report 14342899 (Version 1)
Quarter: 2017Q4

REPORT INFORMATION
  Report Type: Spontaneous
  Country: US (occurrence: US)
  Receive Date: 20171230
  Receipt Date: 20171230
  Transmission Date: 20180321
  Serious: Yes (Other)
  Sender: FDA-Public Use
  Company Number: None

PATIENT
  Age: 55 Year
  Sex: Female
  Weight: 56.25 kg

DRUGS (3)
  1. LEVOTHYROXINE. [Concomitant]
     Active Substance: LEVOTHYROXINE
  2. LUNESTA [Suspect]
     Active Substance: ESZOPICLONE
     Indication: INSOMNIA
     Dates: start: 20120101, end: 20150101
  3. ADVIL [Concomitant]
     Active Substance: IBUPROFEN

REACTIONS (6)
  - Muscle spasms [None]
  - Therapy cessation [None]
  - Musculoskeletal stiffness [None]
  - Muscle rigidity [None]
  - Withdrawal syndrome [None]
  - Seizure [None]

NARRATIVE: CASE EVENT DATE: 20151101
